FAERS Safety Report 8839585 (Version 1)
Quarter: 2012Q4

REPORT INFORMATION
  Report Type: 
  Country: CA (occurrence: CA)
  Receive Date: 20121015
  Receipt Date: 20121015
  Transmission Date: 20130627
  Serious: Yes (Other)
  Sender: FDA-Public Use
  Company Number: PHHY2011CA78074

PATIENT
  Sex: Female

DRUGS (10)
  1. ACLASTA [Suspect]
     Indication: OSTEOPOROSIS
     Dosage: UNK
     Route: 042
     Dates: start: 20081031
  2. ACLASTA [Suspect]
     Dosage: UNK
     Route: 042
     Dates: start: 20091019
  3. ACLASTA [Suspect]
     Dosage: UNK
     Route: 042
     Dates: start: 20101025
  4. ACLASTA [Suspect]
     Dosage: UNK
     Route: 042
     Dates: start: 20110929
  5. ASAPHEN [Concomitant]
  6. CALCITE [Concomitant]
  7. SYNTHROID [Concomitant]
  8. CRESTOR [Concomitant]
  9. IMOVANE [Concomitant]
  10. NEXIUM [Concomitant]

REACTIONS (4)
  - Colon neoplasm [Unknown]
  - Joint swelling [Recovered/Resolved]
  - Arthralgia [Recovered/Resolved]
  - Myalgia [Recovered/Resolved]
